FAERS Safety Report 6882524-0 (Version None)
Quarter: 2010Q3

REPORT INFORMATION
  Report Type: 
  Country: None (occurrence: None)
  Receive Date: 20100729
  Receipt Date: 20100720
  Transmission Date: 20110219
  Serious: Yes (Other)
  Sender: FDA-Public Use
  Company Number: US-BAXTER-2010BH014716

PATIENT
  Age: 61 Year
  Sex: Female
  Weight: 78 kg

DRUGS (20)
  1. GAMMAGARD LIQUID [Suspect]
     Indication: IMMUNODEFICIENCY COMMON VARIABLE
     Route: 042
     Dates: start: 20050916, end: 20100426
  2. GAMMAGARD LIQUID [Suspect]
     Indication: PRIMARY IMMUNODEFICIENCY SYNDROME
     Route: 042
     Dates: start: 20050916, end: 20100426
  3. GAMMAGARD LIQUID [Suspect]
     Route: 042
     Dates: start: 20100426, end: 20100426
  4. GAMMAGARD LIQUID [Suspect]
     Route: 042
     Dates: start: 20100426, end: 20100426
  5. GAMMAGARD LIQUID [Suspect]
     Route: 042
     Dates: start: 20100426, end: 20100426
  6. GAMMAGARD LIQUID [Suspect]
     Route: 042
     Dates: start: 20100426, end: 20100426
  7. SINGULAIR [Concomitant]
     Indication: HYPERSENSITIVITY
     Route: 048
  8. SUDAFED 12 HOUR [Concomitant]
     Indication: NASAL DISCOMFORT
     Route: 048
  9. GUAIFENESIN [Concomitant]
     Indication: NASAL DISCOMFORT
     Route: 048
  10. ACIPHEX [Concomitant]
     Indication: GASTROOESOPHAGEAL REFLUX DISEASE
     Route: 048
  11. ALBUTEROL [Concomitant]
     Indication: BRONCHIAL HYPERREACTIVITY
     Route: 055
  12. CLARITIN [Concomitant]
     Indication: PRURITUS
     Route: 048
  13. DIPHENHYDRAMINE HYDROCHLORIDE [Concomitant]
     Indication: PRURITUS
     Route: 048
  14. LAMISIL                            /00992601/ [Concomitant]
     Indication: FUNGAL INFECTION
     Route: 048
     Dates: start: 20100301, end: 20100603
  15. FISH OIL [Concomitant]
     Indication: VITAMIN SUPPLEMENTATION
     Route: 048
     Dates: end: 20100426
  16. PENICILLIN VK [Concomitant]
     Indication: PROPHYLAXIS
     Route: 048
     Dates: start: 20090925, end: 20100515
  17. EZETIMIBE [Concomitant]
  18. SIMVASTATIN [Concomitant]
  19. FLOVENT [Concomitant]
  20. EPIPEN [Concomitant]

REACTIONS (2)
  - PRURITUS [None]
  - URTICARIA [None]
